FAERS Safety Report 16214421 (Version 1)
Quarter: 2019Q2

REPORT INFORMATION
  Report Type: Spontaneous
  Country: GR (occurrence: GR)
  Receive Date: 20190418
  Receipt Date: 20190418
  Transmission Date: 20190711
  Serious: Yes (Other)
  Sender: FDA-Public Use
  Company Number: GR-PFIZER INC-2019161514

PATIENT
  Age: 50 Year
  Sex: Female

DRUGS (4)
  1. XANAX [Suspect]
     Active Substance: ALPRAZOLAM
     Dosage: HALF A 0.5 MG TABLET BEFORE SLEEP
  2. XANAX [Suspect]
     Active Substance: ALPRAZOLAM
     Indication: PANIC ATTACK
     Dosage: HALF A 0.25 MG TABLET BEFORE SLEEP
  3. XANAX [Suspect]
     Active Substance: ALPRAZOLAM
     Dosage: 2.5 MG, UNK
  4. XANAX [Suspect]
     Active Substance: ALPRAZOLAM
     Dosage: 1.75 MG, UNK

REACTIONS (6)
  - Confusional state [Unknown]
  - Hypothermia [Unknown]
  - Erythema [Unknown]
  - Eye swelling [Unknown]
  - Pruritus [Unknown]
  - Burning sensation [Unknown]
